FAERS Safety Report 16972617 (Version 1)
Quarter: 2019Q4

REPORT INFORMATION
  Report Type: Spontaneous
  Country: FR (occurrence: FR)
  Receive Date: 20191030
  Receipt Date: 20191030
  Transmission Date: 20200122
  Serious: Yes (Other)
  Sender: FDA-Public Use
  Company Number: FR-ROCHE-2451373

PATIENT
  Age: 14 Year
  Sex: Male

DRUGS (3)
  1. NUTROPIN AQ [Suspect]
     Active Substance: SOMATROPIN
     Dosage: ROUTE: PARENTERAL
     Route: 065
     Dates: start: 20190822
  2. NUTROPIN AQ [Suspect]
     Active Substance: SOMATROPIN
     Dosage: ROUTE: PARENTERAL
     Route: 065
     Dates: start: 20190920
  3. NUTROPIN AQ [Suspect]
     Active Substance: SOMATROPIN
     Indication: PRODUCT USED FOR UNKNOWN INDICATION
     Dosage: NUTROPINAQ 10 MG / 2 ML?ROUTE: PARENTERAL
     Route: 065
     Dates: start: 20190807

REACTIONS (1)
  - Migraine [Unknown]

NARRATIVE: CASE EVENT DATE: 20191014
